FAERS Safety Report 8439697-8 (Version None)
Quarter: 2012Q2

REPORT INFORMATION
  Report Type: 
  Country: None (occurrence: None)
  Receive Date: 20120615
  Receipt Date: 20120607
  Transmission Date: 20120825
  Serious: Yes (Other)
  Sender: FDA-Public Use
  Company Number: JP-SANOFI-AVENTIS-2012SA041460

PATIENT
  Age: 68 Year
  Sex: Male

DRUGS (11)
  1. ASPIRIN [Concomitant]
  2. PLAVIX [Suspect]
     Route: 048
     Dates: start: 20120524
  3. CALCIUM CARBONATE [Concomitant]
  4. LIPITOR [Concomitant]
     Dates: start: 20120526, end: 20120602
  5. LEVOCARNITINE HYDROCHLORIDE [Concomitant]
  6. DIOVAN [Concomitant]
  7. CARVEDILOL [Concomitant]
     Dates: start: 20120526
  8. RINLAXER [Concomitant]
  9. LANSOPRAZOLE [Concomitant]
     Dates: start: 20120526
  10. LANTUS [Concomitant]
  11. ALLOPURINOL [Concomitant]

REACTIONS (2)
  - SOMNOLENCE [None]
  - HYPERSOMNIA [None]
